FAERS Safety Report 9331760 (Version 1)
Quarter: 2013Q2

REPORT INFORMATION
  Report Type: Spontaneous
  Country: US (occurrence: None)
  Receive Date: 20130603
  Receipt Date: 20130603
  Transmission Date: 20140414
  Serious: Yes (Other)
  Sender: FDA-Public Use
  Company Number: AUR-APL-2013-04230

PATIENT
  Age: 10 Year
  Sex: Male

DRUGS (1)
  1. SERTRALINE [Suspect]
     Indication: DEPRESSIVE SYMPTOM

REACTIONS (11)
  - Aggression [None]
  - Depressed mood [None]
  - Pyrexia [None]
  - Serotonin syndrome [None]
  - Delusion [None]
  - Hallucinations, mixed [None]
  - Sexually inappropriate behaviour [None]
  - Homicidal ideation [None]
  - Affect lability [None]
  - Illiteracy [None]
  - Extrapyramidal disorder [None]
